FAERS Safety Report 9036884 (Version 2)
Quarter: 2013Q1

REPORT INFORMATION
  Report Type: Spontaneous
  Country: US (occurrence: None)
  Receive Date: 20121221
  Receipt Date: 20130131
  Transmission Date: 20140127
  Serious: Yes (Hospitalization)
  Sender: FDA-Public Use
  Company Number: 2012PROUSA02362

PATIENT
  Age: 84 Year
  Sex: Male
  Weight: 99.4 kg

DRUGS (17)
  1. PROVENGE [Suspect]
     Indication: PROSTATE CANCER METASTATIC
     Route: 042
     Dates: start: 20121105, end: 20121105
  2. ADVAIR [Concomitant]
  3. CALCIUM WITH VITAMIN D [Concomitant]
  4. AMBIEN [Concomitant]
  5. DETROL [Concomitant]
  6. PERCOCET [Concomitant]
  7. XARELTO [Concomitant]
  8. TYLENOL [Concomitant]
  9. DILTIAZEM [Concomitant]
  10. LASIX [Concomitant]
  11. MULTI-VITAMIN [Concomitant]
  12. TYLENOL PM [Concomitant]
  13. FISH OIL [Concomitant]
  14. SINEMET LP [Concomitant]
  15. COLACE [Concomitant]
  16. FLUCONAZOLE [Concomitant]
  17. ASTELIN [Concomitant]

REACTIONS (1)
  - Intestinal obstruction [None]
